FAERS Safety Report 11246525 (Version 1)
Quarter: 2015Q3

REPORT INFORMATION
  Report Type: Report from Study
  Country: AU (occurrence: AU)
  Receive Date: 20150708
  Receipt Date: 20150708
  Transmission Date: 20151125
  Serious: Yes (Hospitalization, Other)
  Sender: FDA-Public Use
  Company Number: AU-ROCHE-1556917

PATIENT
  Age: 81 Year
  Sex: Female

DRUGS (19)
  1. RABEPRAZOLE [Concomitant]
     Active Substance: RABEPRAZOLE
     Route: 065
  2. PARACETAMOL [Concomitant]
     Active Substance: ACETAMINOPHEN
     Dosage: 2 TABLETS BD
     Route: 065
  3. RANITIDINE [Concomitant]
     Active Substance: RANITIDINE\RANITIDINE HYDROCHLORIDE
     Route: 065
  4. PANCREATIC EXTRACT [Concomitant]
     Dosage: 2 TABLETS TDS
     Route: 065
  5. ASPIRIN. [Concomitant]
     Active Substance: ASPIRIN
     Route: 065
  6. METHOTREXATE [Concomitant]
     Active Substance: METHOTREXATE
     Route: 065
  7. VERAPAMIL [Concomitant]
     Active Substance: VERAPAMIL HYDROCHLORIDE
     Route: 065
  8. VERAPAMIL [Concomitant]
     Active Substance: VERAPAMIL HYDROCHLORIDE
     Route: 065
     Dates: start: 20150507
  9. CHOLECALCIFEROL [Concomitant]
     Active Substance: CHOLECALCIFEROL
     Route: 065
  10. SOTALOL. [Concomitant]
     Active Substance: SOTALOL
     Route: 065
  11. AMITRIPTYLIN [Concomitant]
     Active Substance: AMITRIPTYLINE
     Dosage: NOCTE
     Route: 065
  12. FOLATE [Concomitant]
     Active Substance: FOLATE SODIUM
     Route: 065
  13. SERTRALINE [Concomitant]
     Active Substance: SERTRALINE HYDROCHLORIDE
     Route: 065
  14. ACTEMRA [Suspect]
     Active Substance: TOCILIZUMAB
     Indication: RHEUMATOID ARTHRITIS
     Route: 042
     Dates: start: 20130318
  15. WARFARIN [Concomitant]
     Active Substance: WARFARIN
     Dosage: NOCTE
     Route: 065
  16. CANDESARTAN [Concomitant]
     Active Substance: CANDESARTAN
     Route: 065
  17. ROSUVASTATIN [Concomitant]
     Active Substance: ROSUVASTATIN
     Dosage: NOCT
     Route: 065
  18. INSULIN [Concomitant]
     Active Substance: INSULIN NOS
     Route: 065
  19. TEMAZEPAM. [Concomitant]
     Active Substance: TEMAZEPAM
     Dosage: NOCTE
     Route: 065

REACTIONS (12)
  - Bradycardia [Not Recovered/Not Resolved]
  - Vomiting [Recovered/Resolved]
  - Chest pain [Not Recovered/Not Resolved]
  - Dyspnoea [Recovered/Resolved]
  - Nausea [Recovered/Resolved]
  - Atrial fibrillation [Recovering/Resolving]
  - Rectal ulcer [Recovered/Resolved]
  - Gastric hypomotility [Unknown]
  - Tachycardia [Recovered/Resolved]
  - Lower respiratory tract infection [Recovered/Resolved]
  - Haemoglobin decreased [Recovered/Resolved]
  - Loss of consciousness [Unknown]

NARRATIVE: CASE EVENT DATE: 20150323
